FAERS Safety Report 23649294 (Version 1)
Quarter: 2024Q1

REPORT INFORMATION
  Report Type: Spontaneous
  Country: US (occurrence: US)
  Receive Date: 20240319
  Receipt Date: 20240319
  Transmission Date: 20240409
  Serious: Yes (Hospitalization)
  Sender: FDA-Public Use
  Company Number: US-TEVA-VS-3170305

PATIENT
  Age: 66 Year
  Sex: Female
  Weight: 70.31 kg

DRUGS (10)
  1. AJOVY [Suspect]
     Active Substance: FREMANEZUMAB-VFRM
     Indication: Migraine
     Route: 065
  2. METFORMIN [Concomitant]
     Active Substance: METFORMIN HYDROCHLORIDE
  3. OMEPRAZOLE [Concomitant]
     Active Substance: OMEPRAZOLE
  4. METOCLOPRAMIDE [Concomitant]
     Active Substance: METOCLOPRAMIDE
     Dosage: 10 MG 2 TABLETS FOUR TIMES A DAY
  5. GEMFIBROZIL [Concomitant]
     Active Substance: GEMFIBROZIL
     Dosage: 600 MG 1 CAP AT DINNERTIME
  6. PRAVASTATIN [Concomitant]
     Active Substance: PRAVASTATIN
     Dosage: 20 MG 1 TAB AT BREAKFAST
  7. FUROSEMIDE [Concomitant]
     Active Substance: FUROSEMIDE
     Dosage: 40 MG 1 TAB TWO TIMES A DAY
  8. SILDENAFIL [Concomitant]
     Active Substance: SILDENAFIL
     Dosage: 20 MG 1 TAB AT DINNERTIME
  9. TOPIRAMATE [Concomitant]
     Active Substance: TOPIRAMATE
     Dosage: 200 MG 1 TABLET EVERY 12 HOURS
  10. LEVOTHYROXINE [Concomitant]
     Active Substance: LEVOTHYROXINE\LEVOTHYROXINE SODIUM
     Dosage: 25 MCG 1 TABLET BY 6 AM

REACTIONS (6)
  - Hospitalisation [Recovered/Resolved]
  - Head discomfort [Recovering/Resolving]
  - Thyroid disorder [Not Recovered/Not Resolved]
  - Confusional state [Recovering/Resolving]
  - Spinal operation [Recovered/Resolved]
  - Illness [Unknown]

NARRATIVE: CASE EVENT DATE: 20240201
